FAERS Safety Report 23934734 (Version 4)
Quarter: 2024Q4

REPORT INFORMATION
  Report Type: Spontaneous
  Country: US (occurrence: US)
  Receive Date: 20240603
  Receipt Date: 20241002
  Transmission Date: 20250114
  Serious: Yes (Other)
  Sender: NOVARTIS
  Company Number: US-002147023-NVSC2024US115719

PATIENT

DRUGS (1)
  1. COSENTYX [Suspect]
     Active Substance: SECUKINUMAB
     Indication: Ankylosing spondylitis
     Dosage: UNK
     Route: 065

REACTIONS (9)
  - Ankylosing spondylitis [Unknown]
  - Burning sensation [Unknown]
  - Pain [Unknown]
  - Memory impairment [Unknown]
  - Spondylitis [Unknown]
  - Tendonitis [Unknown]
  - Epicondylitis [Unknown]
  - Bone pain [Unknown]
  - Drug ineffective [Unknown]
